FAERS Safety Report 20394320 (Version 1)
Quarter: 2022Q1

REPORT INFORMATION
  Report Type: Spontaneous
  Country: IT (occurrence: IT)
  Receive Date: 20220129
  Receipt Date: 20220129
  Transmission Date: 20220423
  Serious: Yes (Other)
  Sender: FDA-Public Use
  Company Number: None

PATIENT
  Age: 76 Year
  Sex: Female

DRUGS (7)
  1. TRAZODONE HYDROCHLORIDE [Suspect]
     Active Substance: TRAZODONE HYDROCHLORIDE
     Indication: Depression
     Route: 048
  2. LEVOTHYROXINE [Concomitant]
     Active Substance: LEVOTHYROXINE
  3. Oxycodone, Naloxone [Concomitant]
  4. IPRATROPIUM [Concomitant]
     Active Substance: IPRATROPIUM
  5. GABAPENTIN [Concomitant]
     Active Substance: GABAPENTIN
  6. AMIODARONE [Concomitant]
     Active Substance: AMIODARONE
  7. QUETIAPINE [Concomitant]
     Active Substance: QUETIAPINE

REACTIONS (5)
  - Speech disorder [Not Recovered/Not Resolved]
  - Confusional state [Not Recovered/Not Resolved]
  - Staring [Not Recovered/Not Resolved]
  - Hyporesponsive to stimuli [Not Recovered/Not Resolved]
  - Headache [Not Recovered/Not Resolved]

NARRATIVE: CASE EVENT DATE: 20211123
